FAERS Safety Report 7540391-6 (Version None)
Quarter: 2011Q2

REPORT INFORMATION
  Report Type: 
  Country: None (occurrence: None)
  Receive Date: 20110603
  Receipt Date: 20110525
  Transmission Date: 20111010
  Serious: Yes (Death)
  Sender: FDA-Public Use
  Company Number: 931680

PATIENT
  Sex: Female

DRUGS (3)
  1. CARBOPLATIN [Suspect]
     Indication: OVARIAN CANCER
     Dosage: AUC 6, INTRAVENOUS
     Route: 042
  2. DOCETAXEL [Suspect]
     Indication: OVARIAN CANCER
     Dosage: 75 MG/M^2, INTRAVENOUS
     Route: 042
  3. ERLOTINIB HYDROCHLORIDE [Suspect]
     Indication: OVARIAN CANCER
     Dosage: STARTING DOSE 50 MG DAILY, ORAL, MAINTENANCE THERAPY WITH 150 MG DAILY, ORAL, SIX CYCLES, 12 MONTHS
     Route: 048

REACTIONS (2)
  - GASTROINTESTINAL TOXICITY [None]
  - CLOSTRIDIUM COLITIS [None]
